FAERS Safety Report 13582815 (Version 1)
Quarter: 2017Q2

REPORT INFORMATION
  Report Type: Spontaneous
  Country: US (occurrence: US)
  Receive Date: 20170525
  Receipt Date: 20170525
  Transmission Date: 20170830
  Serious: No
  Sender: FDA-Public Use
  Company Number: US-MATRIXX INITIATIVES, INC.-2021230

PATIENT
  Age: 50 Year
  Sex: Male
  Weight: 77.27 kg

DRUGS (2)
  1. UNSPECIFIED EPILEPSY MEDICATIONS [Concomitant]
  2. ZICAM COLD REMEDY ULTRA CRYSTALS [Suspect]
     Active Substance: HOMEOPATHICS
     Indication: VIRAL UPPER RESPIRATORY TRACT INFECTION
     Route: 048
     Dates: start: 20170517, end: 20170518

REACTIONS (2)
  - Ageusia [None]
  - Anosmia [None]
